FAERS Safety Report 22052451 (Version 1)
Quarter: 2023Q1

REPORT INFORMATION
  Report Type: Report from Study
  Country: US (occurrence: US)
  Receive Date: 20230302
  Receipt Date: 20230302
  Transmission Date: 20230417
  Serious: Yes (Hospitalization)
  Sender: FDA-Public Use
  Company Number: US-ABBVIE-4309606

PATIENT
  Age: 65 Year
  Sex: Female
  Weight: 59.42 kg

DRUGS (4)
  1. CREON [Suspect]
     Active Substance: PANCRELIPASE AMYLASE\PANCRELIPASE LIPASE\PANCRELIPASE PROTEASE
     Indication: Pancreatic failure
     Dosage: LAST ADMIN DATE:  NOV 2022, FORM STRENGTH: 36000 MILLIGRAMS, 2 CAPSULE WITH MEALS
     Route: 048
     Dates: start: 202207
  2. CREON [Suspect]
     Active Substance: PANCRELIPASE AMYLASE\PANCRELIPASE LIPASE\PANCRELIPASE PROTEASE
     Indication: Pancreatic failure
     Dosage: FORM STRENGTH: 36000 MILLIGRAM, 3 CAPSULE WITH MEALS
     Route: 048
  3. SYNTHROID [Concomitant]
     Active Substance: LEVOTHYROXINE SODIUM
     Indication: Product used for unknown indication
  4. ALPRAZOLAM [Concomitant]
     Active Substance: ALPRAZOLAM
     Indication: Product used for unknown indication

REACTIONS (10)
  - Diarrhoea [Recovered/Resolved]
  - Illness [Recovered/Resolved]
  - Diarrhoea [Not Recovered/Not Resolved]
  - Feeding disorder [Recovered/Resolved]
  - Dehydration [Recovered/Resolved]
  - Pain [Recovered/Resolved]
  - Underdose [Unknown]
  - Steatorrhoea [Recovered/Resolved]
  - Gait inability [Recovered/Resolved]
  - Weight decreased [Recovered/Resolved]

NARRATIVE: CASE EVENT DATE: 20220701
